FAERS Safety Report 19711020 (Version 5)
Quarter: 2025Q3

REPORT INFORMATION
  Report Type: Spontaneous
  Country: EU (occurrence: EU)
  Receive Date: 20210817
  Receipt Date: 20250822
  Transmission Date: 20251021
  Serious: Yes (Hospitalization, Other)
  Sender: MYLAN
  Company Number: EU-KRKA-ES2021K02120LIT

PATIENT
  Age: 75 Year
  Sex: Male

DRUGS (120)
  1. AMIODARONE [Suspect]
     Active Substance: AMIODARONE
     Indication: Ventricular tachycardia
     Route: 065
  2. AMIODARONE [Suspect]
     Active Substance: AMIODARONE
  3. AMIODARONE [Suspect]
     Active Substance: AMIODARONE
  4. AMIODARONE [Suspect]
     Active Substance: AMIODARONE
     Route: 065
  5. AMIODARONE [Suspect]
     Active Substance: AMIODARONE
     Dosage: 200 MILLIGRAM, QD
     Route: 065
  6. AMIODARONE [Suspect]
     Active Substance: AMIODARONE
     Dosage: 200 MILLIGRAM, QD
  7. AMIODARONE [Suspect]
     Active Substance: AMIODARONE
     Dosage: 200 MILLIGRAM, QD
  8. AMIODARONE [Suspect]
     Active Substance: AMIODARONE
     Dosage: 200 MILLIGRAM, QD
     Route: 065
  9. TAMSULOSIN [Suspect]
     Active Substance: TAMSULOSIN
     Indication: Product used for unknown indication
     Dosage: 0.4 MILLIGRAM, QD
  10. TAMSULOSIN [Suspect]
     Active Substance: TAMSULOSIN
     Dosage: 0.4 MILLIGRAM, QD
     Route: 065
  11. TAMSULOSIN [Suspect]
     Active Substance: TAMSULOSIN
     Dosage: 0.4 MILLIGRAM, QD
     Route: 065
  12. TAMSULOSIN [Suspect]
     Active Substance: TAMSULOSIN
     Dosage: 0.4 MILLIGRAM, QD
  13. ATORVASTATIN [Suspect]
     Active Substance: ATORVASTATIN
     Indication: Dyslipidaemia
     Dosage: 20 MILLIGRAM, QD
  14. ATORVASTATIN [Suspect]
     Active Substance: ATORVASTATIN
     Dosage: 20 MILLIGRAM, QD
     Route: 065
  15. ATORVASTATIN [Suspect]
     Active Substance: ATORVASTATIN
     Dosage: 20 MILLIGRAM, QD
     Route: 065
  16. ATORVASTATIN [Suspect]
     Active Substance: ATORVASTATIN
     Dosage: 20 MILLIGRAM, QD
  17. TIOTROPIUM [Suspect]
     Active Substance: TIOTROPIUM
     Indication: Chronic obstructive pulmonary disease
     Dosage: 18 MILLIGRAM, QD
  18. TIOTROPIUM [Suspect]
     Active Substance: TIOTROPIUM
     Dosage: 18 MILLIGRAM, QD
     Route: 065
  19. TIOTROPIUM [Suspect]
     Active Substance: TIOTROPIUM
     Dosage: 18 MILLIGRAM, QD
     Route: 065
  20. TIOTROPIUM [Suspect]
     Active Substance: TIOTROPIUM
     Dosage: 18 MILLIGRAM, QD
  21. BISOPROLOL [Suspect]
     Active Substance: BISOPROLOL
     Indication: Cardiac failure congestive
     Dosage: 2.5 MILLIGRAM, QD (1.25 MG, 2X PER DAY)
     Route: 065
  22. BISOPROLOL [Suspect]
     Active Substance: BISOPROLOL
     Indication: Hypertension
     Dosage: 2.5 MILLIGRAM, QD (1.25 MG, 2X PER DAY)
  23. BISOPROLOL [Suspect]
     Active Substance: BISOPROLOL
     Dosage: 2.5 MILLIGRAM, QD (1.25 MG, 2X PER DAY)
  24. BISOPROLOL [Suspect]
     Active Substance: BISOPROLOL
     Dosage: 2.5 MILLIGRAM, QD (1.25 MG, 2X PER DAY)
     Route: 065
  25. BISOPROLOL [Suspect]
     Active Substance: BISOPROLOL
     Dosage: 2.5 MILLIGRAM, QD (1.25 MG, 2X PER DAY)
     Route: 065
  26. BISOPROLOL [Suspect]
     Active Substance: BISOPROLOL
     Dosage: 2.5 MILLIGRAM, QD (1.25 MG, 2X PER DAY)
  27. BISOPROLOL [Suspect]
     Active Substance: BISOPROLOL
     Dosage: 2.5 MILLIGRAM, QD (1.25 MG, 2X PER DAY)
  28. BISOPROLOL [Suspect]
     Active Substance: BISOPROLOL
     Dosage: 2.5 MILLIGRAM, QD (1.25 MG, 2X PER DAY)
     Route: 065
  29. FUROSEMIDE [Suspect]
     Active Substance: FUROSEMIDE
     Indication: Product used for unknown indication
     Dosage: 120 MILLIGRAM, QD
  30. FUROSEMIDE [Suspect]
     Active Substance: FUROSEMIDE
     Dosage: 120 MILLIGRAM, QD
     Route: 065
  31. FUROSEMIDE [Suspect]
     Active Substance: FUROSEMIDE
     Dosage: 120 MILLIGRAM, QD
     Route: 065
  32. FUROSEMIDE [Suspect]
     Active Substance: FUROSEMIDE
     Dosage: 120 MILLIGRAM, QD
  33. ENALAPRIL [Suspect]
     Active Substance: ENALAPRIL
     Indication: Cardiac failure congestive
     Dosage: 2.5 MILLIGRAM, QD
     Route: 065
  34. ENALAPRIL [Suspect]
     Active Substance: ENALAPRIL
     Indication: Hypertension
     Dosage: 2.5 MILLIGRAM, QD
  35. ENALAPRIL [Suspect]
     Active Substance: ENALAPRIL
     Dosage: 2.5 MILLIGRAM, QD
  36. ENALAPRIL [Suspect]
     Active Substance: ENALAPRIL
     Dosage: 2.5 MILLIGRAM, QD
     Route: 065
  37. ENALAPRIL [Suspect]
     Active Substance: ENALAPRIL
     Dosage: 2.5 MILLIGRAM, QD
     Route: 065
  38. ENALAPRIL [Suspect]
     Active Substance: ENALAPRIL
     Dosage: 2.5 MILLIGRAM, QD
  39. ENALAPRIL [Suspect]
     Active Substance: ENALAPRIL
     Dosage: 2.5 MILLIGRAM, QD
  40. ENALAPRIL [Suspect]
     Active Substance: ENALAPRIL
     Dosage: 2.5 MILLIGRAM, QD
     Route: 065
  41. EPLERENONE [Suspect]
     Active Substance: EPLERENONE
     Indication: Product used for unknown indication
     Dosage: 50 MILLIGRAM, QD
     Route: 065
  42. EPLERENONE [Suspect]
     Active Substance: EPLERENONE
     Dosage: 50 MILLIGRAM, QD
  43. EPLERENONE [Suspect]
     Active Substance: EPLERENONE
     Dosage: 50 MILLIGRAM, QD
  44. EPLERENONE [Suspect]
     Active Substance: EPLERENONE
     Dosage: 50 MILLIGRAM, QD
     Route: 065
  45. EPLERENONE [Suspect]
     Active Substance: EPLERENONE
     Dosage: 25 MILLIGRAM, QD
     Route: 065
  46. EPLERENONE [Suspect]
     Active Substance: EPLERENONE
     Dosage: 25 MILLIGRAM, QD
  47. EPLERENONE [Suspect]
     Active Substance: EPLERENONE
     Dosage: 25 MILLIGRAM, QD
  48. EPLERENONE [Suspect]
     Active Substance: EPLERENONE
     Dosage: 25 MILLIGRAM, QD
     Route: 065
  49. ALLOPURINOL [Suspect]
     Active Substance: ALLOPURINOL
     Indication: Hyperuricaemia
     Dosage: 300 MILLIGRAM, QD
  50. ALLOPURINOL [Suspect]
     Active Substance: ALLOPURINOL
     Dosage: 300 MILLIGRAM, QD
     Route: 065
  51. ALLOPURINOL [Suspect]
     Active Substance: ALLOPURINOL
     Dosage: 300 MILLIGRAM, QD
     Route: 065
  52. ALLOPURINOL [Suspect]
     Active Substance: ALLOPURINOL
     Dosage: 300 MILLIGRAM, QD
  53. FLUTICASONE PROPIONATE\SALMETEROL XINAFOATE [Suspect]
     Active Substance: FLUTICASONE PROPIONATE\SALMETEROL XINAFOATE
     Indication: Dyspnoea
     Dosage: 2 DOSAGE FORM, QD (25MCG/125MCG, 2X PER DAY)
  54. FLUTICASONE PROPIONATE\SALMETEROL XINAFOATE [Suspect]
     Active Substance: FLUTICASONE PROPIONATE\SALMETEROL XINAFOATE
     Dosage: 2 DOSAGE FORM, QD (25MCG/125MCG, 2X PER DAY)
     Route: 065
  55. FLUTICASONE PROPIONATE\SALMETEROL XINAFOATE [Suspect]
     Active Substance: FLUTICASONE PROPIONATE\SALMETEROL XINAFOATE
     Dosage: 2 DOSAGE FORM, QD (25MCG/125MCG, 2X PER DAY)
     Route: 065
  56. FLUTICASONE PROPIONATE\SALMETEROL XINAFOATE [Suspect]
     Active Substance: FLUTICASONE PROPIONATE\SALMETEROL XINAFOATE
     Dosage: 2 DOSAGE FORM, QD (25MCG/125MCG, 2X PER DAY)
  57. LEVOSIMENDAN [Suspect]
     Active Substance: LEVOSIMENDAN
     Indication: Cardiac failure congestive
  58. LEVOSIMENDAN [Suspect]
     Active Substance: LEVOSIMENDAN
     Route: 065
  59. LEVOSIMENDAN [Suspect]
     Active Substance: LEVOSIMENDAN
     Route: 065
  60. LEVOSIMENDAN [Suspect]
     Active Substance: LEVOSIMENDAN
  61. ACENOCOUMAROL [Suspect]
     Active Substance: ACENOCOUMAROL
     Indication: Arrhythmia
  62. ACENOCOUMAROL [Suspect]
     Active Substance: ACENOCOUMAROL
     Route: 065
  63. ACENOCOUMAROL [Suspect]
     Active Substance: ACENOCOUMAROL
     Route: 065
  64. ACENOCOUMAROL [Suspect]
     Active Substance: ACENOCOUMAROL
  65. ALBUTEROL [Suspect]
     Active Substance: ALBUTEROL
     Indication: Dyspnoea
  66. ALBUTEROL [Suspect]
     Active Substance: ALBUTEROL
     Route: 065
  67. ALBUTEROL [Suspect]
     Active Substance: ALBUTEROL
     Route: 065
  68. ALBUTEROL [Suspect]
     Active Substance: ALBUTEROL
  69. LEVOTHYROXINE [Suspect]
     Active Substance: LEVOTHYROXINE
     Indication: Hypothyroidism
     Dosage: 75 MICROGRAM, QD
  70. LEVOTHYROXINE [Suspect]
     Active Substance: LEVOTHYROXINE
     Dosage: 75 MICROGRAM, QD
     Route: 065
  71. LEVOTHYROXINE [Suspect]
     Active Substance: LEVOTHYROXINE
     Dosage: 75 MICROGRAM, QD
     Route: 065
  72. LEVOTHYROXINE [Suspect]
     Active Substance: LEVOTHYROXINE
     Dosage: 75 MICROGRAM, QD
  73. FUROSEMIDE [Suspect]
     Active Substance: FUROSEMIDE
     Indication: Product used for unknown indication
  74. FUROSEMIDE [Suspect]
     Active Substance: FUROSEMIDE
     Route: 042
  75. FUROSEMIDE [Suspect]
     Active Substance: FUROSEMIDE
     Route: 042
  76. FUROSEMIDE [Suspect]
     Active Substance: FUROSEMIDE
  77. MORPHINE [Suspect]
     Active Substance: MORPHINE
     Indication: Dyspnoea
  78. MORPHINE [Suspect]
     Active Substance: MORPHINE
     Route: 065
  79. MORPHINE [Suspect]
     Active Substance: MORPHINE
     Route: 065
  80. MORPHINE [Suspect]
     Active Substance: MORPHINE
  81. DIGOXIN [Suspect]
     Active Substance: DIGOXIN
     Indication: Cardiac failure congestive
     Dosage: 0.25 MILLIGRAM, QD
     Route: 065
  82. DIGOXIN [Suspect]
     Active Substance: DIGOXIN
     Dosage: 0.25 MILLIGRAM, QD
  83. DIGOXIN [Suspect]
     Active Substance: DIGOXIN
     Dosage: 0.25 MILLIGRAM, QD
  84. DIGOXIN [Suspect]
     Active Substance: DIGOXIN
     Dosage: 0.25 MILLIGRAM, QD
     Route: 065
  85. DIGOXIN [Suspect]
     Active Substance: DIGOXIN
     Dosage: 0.13 MILLIGRAM, QD
     Route: 065
  86. DIGOXIN [Suspect]
     Active Substance: DIGOXIN
     Dosage: 0.13 MILLIGRAM, QD
  87. DIGOXIN [Suspect]
     Active Substance: DIGOXIN
     Dosage: 0.13 MILLIGRAM, QD
  88. DIGOXIN [Suspect]
     Active Substance: DIGOXIN
     Dosage: 0.13 MILLIGRAM, QD
     Route: 065
  89. CARVEDILOL [Suspect]
     Active Substance: CARVEDILOL
     Indication: Product used for unknown indication
     Dosage: 3.13 MG/DAY DEPENDING ON BLOOD PRESSURE
  90. CARVEDILOL [Suspect]
     Active Substance: CARVEDILOL
     Dosage: 3.13 MG/DAY DEPENDING ON BLOOD PRESSURE
     Route: 065
  91. CARVEDILOL [Suspect]
     Active Substance: CARVEDILOL
     Dosage: 3.13 MG/DAY DEPENDING ON BLOOD PRESSURE
     Route: 065
  92. CARVEDILOL [Suspect]
     Active Substance: CARVEDILOL
     Dosage: 3.13 MG/DAY DEPENDING ON BLOOD PRESSURE
  93. SALMETEROL [Suspect]
     Active Substance: SALMETEROL
     Indication: Chronic obstructive pulmonary disease
     Dosage: 25 MICROGRAM, BID
  94. SALMETEROL [Suspect]
     Active Substance: SALMETEROL
     Dosage: 25 MICROGRAM, BID
     Route: 065
  95. SALMETEROL [Suspect]
     Active Substance: SALMETEROL
     Dosage: 25 MICROGRAM, BID
     Route: 065
  96. SALMETEROL [Suspect]
     Active Substance: SALMETEROL
     Dosage: 25 MICROGRAM, BID
  97. FLUTICASONE [Suspect]
     Active Substance: FLUTICASONE
     Indication: Chronic obstructive pulmonary disease
     Dosage: 125 MICROGRAM, BID
  98. FLUTICASONE [Suspect]
     Active Substance: FLUTICASONE
     Dosage: 125 MICROGRAM, BID
     Route: 065
  99. FLUTICASONE [Suspect]
     Active Substance: FLUTICASONE
     Dosage: 125 MICROGRAM, BID
     Route: 065
  100. FLUTICASONE [Suspect]
     Active Substance: FLUTICASONE
     Dosage: 125 MICROGRAM, BID
  101. MAGNESIUM HYDROXIDE [Concomitant]
     Active Substance: MAGNESIUM HYDROXIDE
     Indication: Product used for unknown indication
     Dosage: 2.4 GRAM, QD
  102. MAGNESIUM HYDROXIDE [Concomitant]
     Active Substance: MAGNESIUM HYDROXIDE
     Dosage: 2.4 GRAM, QD
     Route: 065
  103. MAGNESIUM HYDROXIDE [Concomitant]
     Active Substance: MAGNESIUM HYDROXIDE
     Dosage: 2.4 GRAM, QD
     Route: 065
  104. MAGNESIUM HYDROXIDE [Concomitant]
     Active Substance: MAGNESIUM HYDROXIDE
     Dosage: 2.4 GRAM, QD
  105. OMEPRAZOLE [Concomitant]
     Active Substance: OMEPRAZOLE
     Indication: Product used for unknown indication
  106. OMEPRAZOLE [Concomitant]
     Active Substance: OMEPRAZOLE
     Route: 065
  107. OMEPRAZOLE [Concomitant]
     Active Substance: OMEPRAZOLE
     Route: 065
  108. OMEPRAZOLE [Concomitant]
     Active Substance: OMEPRAZOLE
  109. IPRATROPIUM [Concomitant]
     Active Substance: IPRATROPIUM
     Indication: Product used for unknown indication
     Dosage: 500 MICROGRAM, Q8H
  110. IPRATROPIUM [Concomitant]
     Active Substance: IPRATROPIUM
     Dosage: 500 MICROGRAM, Q8H
     Route: 065
  111. IPRATROPIUM [Concomitant]
     Active Substance: IPRATROPIUM
     Dosage: 500 MICROGRAM, Q8H
     Route: 065
  112. IPRATROPIUM [Concomitant]
     Active Substance: IPRATROPIUM
     Dosage: 500 MICROGRAM, Q8H
  113. RISPERIDONE [Concomitant]
     Active Substance: RISPERIDONE
     Indication: Product used for unknown indication
     Dosage: 0.25 MILLIGRAM, BID
  114. RISPERIDONE [Concomitant]
     Active Substance: RISPERIDONE
     Dosage: 0.25 MILLIGRAM, BID
     Route: 065
  115. RISPERIDONE [Concomitant]
     Active Substance: RISPERIDONE
     Dosage: 0.25 MILLIGRAM, BID
     Route: 065
  116. RISPERIDONE [Concomitant]
     Active Substance: RISPERIDONE
     Dosage: 0.25 MILLIGRAM, BID
  117. ACETAMINOPHEN [Concomitant]
     Active Substance: ACETAMINOPHEN
     Indication: Product used for unknown indication
  118. ACETAMINOPHEN [Concomitant]
     Active Substance: ACETAMINOPHEN
     Route: 065
  119. ACETAMINOPHEN [Concomitant]
     Active Substance: ACETAMINOPHEN
     Route: 065
  120. ACETAMINOPHEN [Concomitant]
     Active Substance: ACETAMINOPHEN

REACTIONS (5)
  - Hypotension [Unknown]
  - Hypothyroidism [Unknown]
  - Drug ineffective [Unknown]
  - Constipation [Recovering/Resolving]
  - Off label use [Unknown]
